FAERS Safety Report 9302090 (Version 2)
Quarter: 2013Q3

REPORT INFORMATION
  Report Type: Spontaneous
  Country: BE (occurrence: BE)
  Receive Date: 20130521
  Receipt Date: 20130712
  Transmission Date: 20140515
  Serious: Yes (Life-Threatening)
  Sender: FDA-Public Use
  Company Number: BE-B.I. PHARMACEUTICALS,INC./RIDGEFIELD-2013-BL-00059BL

PATIENT
  Age: 93 Year
  Sex: Male
  Weight: 75 kg

DRUGS (4)
  1. PRADAXA [Suspect]
     Indication: ATRIAL FIBRILLATION
     Dosage: 220 MG
     Route: 048
     Dates: start: 20121113, end: 20121219
  2. QUINAPRIL [Concomitant]
     Indication: HYPERTENSION
     Dosage: 10 MG
     Route: 048
  3. PANTOPRAZOLE [Concomitant]
     Dosage: 20 NR
     Route: 048
  4. LASIX [Concomitant]
     Dosage: 40 NR
     Route: 048

REACTIONS (1)
  - Renal failure chronic [Recovered/Resolved]
